FAERS Safety Report 8179158-7 (Version None)
Quarter: 2012Q1

REPORT INFORMATION
  Report Type: 
  Country: None (occurrence: None)
  Receive Date: 20120302
  Receipt Date: 20120224
  Transmission Date: 20120608
  Serious: No
  Sender: FDA-Public Use
  Company Number: US-PFIZER INC-2012021710

PATIENT
  Sex: Male

DRUGS (3)
  1. SUTENT [Suspect]
     Indication: METASTATIC RENAL CELL CARCINOMA
     Dosage: 50 MG, 1X/DAY 4 WEEKS ON AND 2 OFF
     Dates: start: 20120131
  2. SUTENT [Suspect]
     Indication: RENAL CANCER
     Dosage: 50 MG, 1X/DAY, 10 CYCLES
     Dates: start: 20090601
  3. SUTENT [Suspect]
     Dosage: 50 MG, 1X/DAY

REACTIONS (4)
  - RENAL CANCER METASTATIC [None]
  - NERVOUS SYSTEM DISORDER [None]
  - RASH [None]
  - DISEASE PROGRESSION [None]
